FAERS Safety Report 16596236 (Version 2)
Quarter: 2020Q1

REPORT INFORMATION
  Report Type: Spontaneous
  Country: FR (occurrence: FR)
  Receive Date: 20190719
  Receipt Date: 20200121
  Transmission Date: 20200409
  Serious: Yes (Hospitalization)
  Sender: FDA-Public Use
  Company Number: FR-TEVA-2019-FR-1078156

PATIENT
  Age: 37 Year
  Sex: Male
  Weight: 84 kg

DRUGS (7)
  1. RIVOTRIL [Suspect]
     Active Substance: CLONAZEPAM
     Indication: NEURALGIA
     Dosage: 5 GTT PER DAY
     Route: 048
     Dates: start: 20190523, end: 20190616
  2. VERSATIS 5 %, EMPLATRE MEDICAMENTEUX [Concomitant]
     Active Substance: LIDOCAINE
  3. TEGRETOL [Suspect]
     Active Substance: CARBAMAZEPINE
     Indication: NEURALGIA
     Dosage: 800 MG PER DAY??TEGRETOL 400 MG, COMPRIME SECABLE
     Route: 048
     Dates: start: 20190523, end: 20190616
  4. NOVORAPID [Concomitant]
     Active Substance: INSULIN ASPART
  5. ATORVASTATINE [Concomitant]
     Active Substance: ATORVASTATIN
  6. RAMIPRIL. [Suspect]
     Active Substance: RAMIPRIL
     Indication: HYPERTENSION
     Dosage: 1.25 MG PER DAY
     Route: 048
     Dates: start: 20190523, end: 20190616
  7. TOUJEO [Concomitant]
     Active Substance: INSULIN GLARGINE

REACTIONS (3)
  - Rash erythematous [Recovered/Resolved]
  - Pyrexia [Recovered/Resolved]
  - Eosinophilia [Recovered/Resolved]

NARRATIVE: CASE EVENT DATE: 20190614
